FAERS Safety Report 4721830-2 (Version None)
Quarter: 2005Q3

REPORT INFORMATION
  Report Type: 
  Country: None (occurrence: None)
  Receive Date: 20050721
  Receipt Date: 20050503
  Transmission Date: 20060218
  Serious: Yes (Hospitalization)
  Sender: FDA-Public Use
  Company Number: US-BRISTOL-MYERS SQUIBB COMPANY-12954160

PATIENT
  Age: 72 Year
  Sex: Female

DRUGS (2)
  1. COUMADIN [Suspect]
     Dates: start: 20041101, end: 20050401
  2. XELODA [Suspect]
     Dates: start: 20041101, end: 20050401

REACTIONS (1)
  - HAEMATURIA [None]
